FAERS Safety Report 18080400 (Version 1)
Quarter: 2020Q3

REPORT INFORMATION
  Report Type: Spontaneous
  Country: US (occurrence: US)
  Receive Date: 20200728
  Receipt Date: 20200728
  Transmission Date: 20201103
  Serious: Yes (Hospitalization)
  Sender: FDA-Public Use
  Company Number: None

PATIENT
  Age: 23 Year
  Sex: Female

DRUGS (14)
  1. ONDANSETRON 4MG TABLETS [Concomitant]
  2. GABAPENTIN 300MG CAPSULES [Concomitant]
     Active Substance: GABAPENTIN
  3. VALACYCLOVIR [Concomitant]
     Active Substance: VALACYCLOVIR HYDROCHLORIDE
  4. VITAMIN D 2000IU [Concomitant]
  5. BACTRIM [Suspect]
     Active Substance: SULFAMETHOXAZOLE\TRIMETHOPRIM
  6. PROAIR HFA [Concomitant]
     Active Substance: ALBUTEROL SULFATE
  7. TRAZODONE [Concomitant]
     Active Substance: TRAZODONE HYDROCHLORIDE
  8. CREON 36000U [Concomitant]
  9. VENLAFAXINE ER 37.5MG [Concomitant]
  10. ADVAIR HFA 115/21 MCG ORAL INHALER [Concomitant]
  11. PULMOZYME 1MG/ML SOLUTION [Concomitant]
  12. SODIUM CHLORIDE 7% NEBULIZER SOLUTION [Concomitant]
  13. TRIKAFTA [Suspect]
     Active Substance: ELEXACAFTOR\IVACAFTOR\TEZACAFTOR
     Indication: CYSTIC FIBROSIS
     Dosage: ?          OTHER FREQUENCY:2 QAM, 1 QPM;?
     Route: 048
     Dates: start: 20191126
  14. TOBI 28MG INHALATION CAPS [Concomitant]

REACTIONS (1)
  - Drug hypersensitivity [None]

NARRATIVE: CASE EVENT DATE: 20200721
